FAERS Safety Report 5240029-7 (Version None)
Quarter: 2007Q1

REPORT INFORMATION
  Report Type: 
  Country: None (occurrence: None)
  Receive Date: 20070216
  Receipt Date: 20070208
  Transmission Date: 20070707
  Serious: Yes (Congenital Anomaly, Other)
  Sender: FDA-Public Use
  Company Number: GB-ABBOTT-07P-167-0358723-00

PATIENT
  Sex: Male
  Weight: 34 kg

DRUGS (1)
  1. VALPROATE SODIUM [Suspect]
     Indication: DRUG EXPOSURE DURING PREGNANCY
     Dosage: UNKNOWN
     Route: 064

REACTIONS (31)
  - ABNORMAL BEHAVIOUR [None]
  - ASPERGER'S DISORDER [None]
  - ASTHMA [None]
  - ASTIGMATISM [None]
  - CLINODACTYLY [None]
  - CONGENITAL ELEVATION OF SCAPULA [None]
  - CONGENITAL EYE DISORDER [None]
  - DEPRESSED LEVEL OF CONSCIOUSNESS [None]
  - DEVELOPMENTAL COORDINATION DISORDER [None]
  - DISTURBANCE IN ATTENTION [None]
  - DROOLING [None]
  - DYSMORPHISM [None]
  - FEEDING DISORDER OF INFANCY OR EARLY CHILDHOOD [None]
  - FINGER HYPOPLASIA [None]
  - FOETAL ANTICONVULSANT SYNDROME [None]
  - HEAD DEFORMITY [None]
  - HYDROCELE [None]
  - HYPERACUSIS [None]
  - HYPERMETROPIA [None]
  - LIP DISORDER [None]
  - PECTUS EXCAVATUM [None]
  - PSYCHOMOTOR HYPERACTIVITY [None]
  - RESTLESSNESS [None]
  - SHOULDER DYSTOCIA [None]
  - SLEEP DISORDER [None]
  - SLEEP TERROR [None]
  - SPEECH DISORDER DEVELOPMENTAL [None]
  - STRABISMUS [None]
  - UMBILICAL CORD AROUND NECK [None]
  - VISUAL ACUITY REDUCED [None]
  - VOMITING PROJECTILE [None]
